FAERS Safety Report 12705649 (Version 1)
Quarter: 2016Q3

REPORT INFORMATION
  Report Type: Spontaneous
  Country: US (occurrence: None)
  Receive Date: 20160831
  Receipt Date: 20160831
  Transmission Date: 20161109
  Serious: Yes (Other)
  Sender: FDA-Public Use
  Company Number: None

PATIENT
  Age: 38 Year
  Sex: Female

DRUGS (7)
  1. AMPYRA [Suspect]
     Active Substance: DALFAMPRIDINE
     Indication: MULTIPLE SCLEROSIS
     Route: 048
     Dates: start: 201304
  2. TROSPIUM [Concomitant]
     Active Substance: TROSPIUM
  3. GLATIRAMER [Concomitant]
     Active Substance: GLATIRAMER
  4. LOVASTATIN. [Concomitant]
     Active Substance: LOVASTATIN
  5. NORGESTIMATE/ETHINYL ESTRADIOL [Concomitant]
     Active Substance: ETHINYL ESTRADIOL\NORGESTIMATE
  6. LISINOPRIL. [Concomitant]
     Active Substance: LISINOPRIL
  7. HUMALOG [Concomitant]
     Active Substance: INSULIN LISPRO

REACTIONS (1)
  - Blood iron abnormal [None]

NARRATIVE: CASE EVENT DATE: 20160815
